FAERS Safety Report 10835383 (Version 1)
Quarter: 2015Q1

REPORT INFORMATION
  Report Type: Report from Study
  Country: US (occurrence: US)
  Receive Date: 20150219
  Receipt Date: 20150219
  Transmission Date: 20150721
  Serious: No
  Sender: FDA-Public Use
  Company Number: US-ABBVIE-14P-163-1202390-00

PATIENT
  Age: 41 Year
  Sex: Female
  Weight: 55.39 kg

DRUGS (2)
  1. HUMIRA [Suspect]
     Active Substance: ADALIMUMAB
     Indication: PSORIATIC ARTHROPATHY
     Route: 058
     Dates: start: 201306, end: 201308
  2. LEVOTHYROXINE [Concomitant]
     Active Substance: LEVOTHYROXINE
     Indication: HYPOTHYROIDISM

REACTIONS (4)
  - Incisional drainage [Recovered/Resolved]
  - Impaired healing [Recovered/Resolved]
  - Pharyngitis streptococcal [Recovered/Resolved]
  - Incision site infection [Recovered/Resolved]

NARRATIVE: CASE EVENT DATE: 201308
